FAERS Safety Report 4584036-6 (Version None)
Quarter: 2005Q1

REPORT INFORMATION
  Report Type: 
  Country: None (occurrence: None)
  Receive Date: 20050216
  Receipt Date: 20001214
  Transmission Date: 20050727
  Serious: No
  Sender: FDA-Public Use
  Company Number: DE-MERCK-00125597

PATIENT
  Age: 35 Year
  Sex: Male

DRUGS (3)
  1. VIOXX [Suspect]
     Indication: RHEUMATOID ARTHRITIS
     Route: 048
     Dates: start: 20000717
  2. VIOXX [Suspect]
     Indication: ARTHRALGIA
     Route: 048
     Dates: start: 20000717
  3. LEFLUNOMIDE [Concomitant]
     Indication: RHEUMATOID ARTHRITIS
     Route: 065
     Dates: start: 20000710

REACTIONS (11)
  - AGITATION [None]
  - ARRHYTHMIA [None]
  - BLOOD PRESSURE INCREASED [None]
  - CARDIAC DISORDER [None]
  - CHEST DISCOMFORT [None]
  - DIZZINESS [None]
  - FEAR [None]
  - HYPERHIDROSIS [None]
  - TACHYCARDIA [None]
  - VISUAL DISTURBANCE [None]
  - WEIGHT INCREASED [None]
